FAERS Safety Report 6095911-8 (Version None)
Quarter: 2009Q1

REPORT INFORMATION
  Report Type: 
  Country: None (occurrence: None)
  Receive Date: 20090227
  Receipt Date: 20080724
  Transmission Date: 20090719
  Serious: No
  Sender: FDA-Public Use
  Company Number: A0737700A

PATIENT
  Age: 58 Year
  Sex: Female
  Weight: 94.1 kg

DRUGS (2)
  1. LAMICTAL [Suspect]
     Indication: EPILEPSY
     Dosage: 50MG TWICE PER DAY
     Route: 048
     Dates: start: 20080423, end: 20080527
  2. DEPAKOTE ER [Concomitant]
     Dosage: 250MG UNKNOWN
     Route: 048

REACTIONS (2)
  - LIP SWELLING [None]
  - RASH GENERALISED [None]
